FAERS Safety Report 16260114 (Version 1)
Quarter: 2019Q2

REPORT INFORMATION
  Report Type: Spontaneous
  Country: US (occurrence: US)
  Receive Date: 20190430
  Receipt Date: 20190430
  Transmission Date: 20190711
  Serious: Yes (Hospitalization)
  Sender: FDA-Public Use
  Company Number: None

PATIENT
  Age: 49 Year
  Sex: Female
  Weight: 124 kg

DRUGS (12)
  1. RIVAROXABAN [Suspect]
     Active Substance: RIVAROXABAN
     Indication: ARTERIAL THROMBOSIS
     Route: 048
     Dates: start: 20171117, end: 20190424
  2. ACETAMINOPHEN. [Concomitant]
     Active Substance: ACETAMINOPHEN
  3. COREG 25 MG [Concomitant]
  4. DULOXETINE 60 MG [Concomitant]
     Active Substance: DULOXETINE
  5. CLOPIDOGREL [Concomitant]
     Active Substance: CLOPIDOGREL BISULFATE
  6. FUROSEMIDE 20 MG [Concomitant]
     Active Substance: FUROSEMIDE
  7. ASA 325 MG [Concomitant]
  8. NAPROXEN 220 MG [Concomitant]
  9. IMDUR 30 MG [Concomitant]
  10. CELEBREX [Concomitant]
     Active Substance: CELECOXIB
  11. ROSUVASTATIN 20 MG [Concomitant]
  12. INCRUSE ELLIPTA [Concomitant]
     Active Substance: UMECLIDINIUM BROMIDE

REACTIONS (2)
  - Pain in extremity [None]
  - Deep vein thrombosis [None]

NARRATIVE: CASE EVENT DATE: 20190425
